FAERS Safety Report 9015105 (Version 1)
Quarter: 2013Q1

REPORT INFORMATION
  Report Type: Spontaneous
  Country: US (occurrence: None)
  Receive Date: 20130109
  Receipt Date: 20130109
  Transmission Date: 20140127
  Serious: Yes (Other)
  Sender: FDA-Public Use
  Company Number: None

PATIENT
  Sex: Female

DRUGS (5)
  1. NEUPOGEN PFS 300MCG AMGEN [Suspect]
     Indication: CHRONIC HEPATITIS C
     Route: 058
     Dates: start: 20121204
  2. NEUPOGEN PFS 300MCG AMGEN [Suspect]
     Indication: COMA HEPATIC
     Route: 058
     Dates: start: 20121204
  3. VICTRELIS [Concomitant]
  4. PEGASYS [Concomitant]
  5. RIBAVIRIN [Concomitant]

REACTIONS (1)
  - Joint swelling [None]
